FAERS Safety Report 13590443 (Version 1)
Quarter: 2017Q2

REPORT INFORMATION
  Report Type: Spontaneous
  Country: US (occurrence: US)
  Receive Date: 20170529
  Receipt Date: 20170529
  Transmission Date: 20170830
  Serious: Yes (Other)
  Sender: FDA-Public Use
  Company Number: None

PATIENT
  Age: 68 Year
  Sex: Male
  Weight: 78.3 kg

DRUGS (4)
  1. B-12 COMPLEX [Concomitant]
  2. B5 [Concomitant]
  3. DELSYM [Suspect]
     Active Substance: DEXTROMETHORPHAN
     Indication: VIRAL UPPER RESPIRATORY TRACT INFECTION
     Dosage: 1 LIQUID MEASURE; ORAL EVERY 12 HOURS?
     Route: 048
     Dates: start: 20170529
  4. SAW PALMETTO [Concomitant]
     Active Substance: HERBALS\SAW PALMETTO

REACTIONS (3)
  - Rash [None]
  - Product formulation issue [None]
  - Toxicity to various agents [None]
